FAERS Safety Report 22208567 (Version 1)
Quarter: 2023Q2

REPORT INFORMATION
  Report Type: Report from Study
  Country: BR (occurrence: BR)
  Receive Date: 20230413
  Receipt Date: 20230413
  Transmission Date: 20230721
  Serious: Yes (Death, Other)
  Sender: FDA-Public Use
  Company Number: BR-Ipsen Biopharmaceuticals, Inc.-2023-08726

PATIENT
  Age: 95 Year
  Sex: Male

DRUGS (1)
  1. LANREOTIDE ACETATE [Suspect]
     Active Substance: LANREOTIDE ACETATE
     Indication: Neuroendocrine tumour
     Dosage: 1 SYRINGE EVERY 28 DAYS
     Route: 058
     Dates: start: 202012, end: 20220705

REACTIONS (1)
  - Death [Fatal]

NARRATIVE: CASE EVENT DATE: 20220705
